FAERS Safety Report 9531530 (Version 1)
Quarter: 2013Q2

REPORT INFORMATION
  Report Type: Spontaneous
  Country: US (occurrence: None)
  Receive Date: 20130418
  Receipt Date: 20130418
  Transmission Date: 20140414
  Serious: No
  Sender: FDA-Public Use
  Company Number: 2013PROUSA02452

PATIENT
  Age: 84 Year
  Sex: Male
  Weight: 70.3 kg

DRUGS (2)
  1. PROVENGE (SIPULEUCEL-T) SUSPENSION, 250ML [Suspect]
     Indication: PROSTATE CANCER METASTATIC
     Dosage: 250 ML, SINGLE, INTRAVEOUS?
     Route: 042
     Dates: start: 20121214, end: 20121214
  2. AMOXICILLIN (AMOXICILLIN TRIHYDRATE) [Concomitant]

REACTIONS (2)
  - Bronchitis [None]
  - Back injury [None]
